FAERS Safety Report 4986827-6 (Version None)
Quarter: 2006Q2

REPORT INFORMATION
  Report Type: 
  Country: None (occurrence: None)
  Receive Date: 20060428
  Receipt Date: 20050301
  Transmission Date: 20061013
  Serious: Yes (Hospitalization, Other)
  Sender: FDA-Public Use
  Company Number: US-MERCK-0503USA00404

PATIENT
  Age: 57 Year
  Sex: Female
  Weight: 130 kg

DRUGS (7)
  1. VIOXX [Suspect]
     Indication: ARTHRITIS
     Route: 048
     Dates: end: 20031001
  2. TOPROL-XL [Concomitant]
     Route: 065
     Dates: start: 20030201
  3. PLAVIX [Concomitant]
     Route: 065
     Dates: start: 20030301
  4. LIPITOR [Concomitant]
     Route: 065
     Dates: start: 20030301
  5. IMIPRAMINE HYDROCHLORIDE [Concomitant]
     Route: 065
  6. VICODIN [Concomitant]
     Route: 065
  7. [THERAPY UNSPECIFIED] [Concomitant]
     Route: 065

REACTIONS (38)
  - ACUTE CORONARY SYNDROME [None]
  - ANAEMIA [None]
  - ANAPHYLACTIC REACTION [None]
  - ANGINA PECTORIS [None]
  - ARRHYTHMIA [None]
  - ARTHROPATHY [None]
  - BLEPHARAL PAPILLOMA [None]
  - BLOOD CHOLESTEROL ABNORMAL [None]
  - CHEST PAIN [None]
  - CORONARY ARTERY DISEASE [None]
  - CORONARY ARTERY STENOSIS [None]
  - CYSTITIS [None]
  - DYSPNOEA EXERTIONAL [None]
  - EPISTAXIS [None]
  - EXOPHTHALMOS [None]
  - FALL [None]
  - FOOT FRACTURE [None]
  - GASTRITIS [None]
  - GASTROOESOPHAGEAL REFLUX DISEASE [None]
  - HEADACHE [None]
  - INSOMNIA [None]
  - ISCHAEMIA [None]
  - JOINT INJURY [None]
  - LOCALISED INFECTION [None]
  - MIGRAINE [None]
  - MITRAL VALVE INCOMPETENCE [None]
  - MYOCARDIAL INFARCTION [None]
  - PERICARDITIS [None]
  - PLEURITIC PAIN [None]
  - PNEUMONIA [None]
  - POST PROCEDURAL COMPLICATION [None]
  - RHINITIS ALLERGIC [None]
  - SEASONAL ALLERGY [None]
  - SYNCOPE [None]
  - TENSION HEADACHE [None]
  - TUBERCULIN TEST POSITIVE [None]
  - UPPER RESPIRATORY TRACT INFECTION [None]
  - URINARY TRACT INFECTION [None]
